FAERS Safety Report 9698057 (Version 3)
Quarter: 2015Q2

REPORT INFORMATION
  Report Type: Spontaneous
  Country: US (occurrence: US)
  Receive Date: 20131120
  Receipt Date: 20150406
  Transmission Date: 20150821
  Serious: Yes (Life-Threatening, Hospitalization, Other)
  Sender: FDA-Public Use
  Company Number: US-BAYER-2013-139538

PATIENT
  Age: 17 Year
  Sex: Female
  Weight: 71.2 kg

DRUGS (2)
  1. VICODIN [Concomitant]
     Active Substance: ACETAMINOPHEN\HYDROCODONE BITARTRATE
     Dosage: UNK
     Dates: start: 201012, end: 20130523
  2. MIRENA [Suspect]
     Active Substance: LEVONORGESTREL
     Indication: CONTRACEPTION
     Dosage: 20 MCG/24HR, CONT
     Route: 015
     Dates: start: 201201, end: 20130404

REACTIONS (12)
  - Haemorrhagic ovarian cyst [None]
  - Pelvic pain [Not Recovered/Not Resolved]
  - Injury [None]
  - Nausea [Recovered/Resolved]
  - Device dislocation [None]
  - Abdominal pain lower [None]
  - Anhedonia [None]
  - Device defective [None]
  - Anxiety [None]
  - General physical health deterioration [None]
  - Depression [None]
  - Emotional distress [None]

NARRATIVE: CASE EVENT DATE: 2013
